FAERS Safety Report 15885018 (Version 2)
Quarter: 2019Q1

REPORT INFORMATION
  Report Type: Spontaneous
  Country: CA (occurrence: CA)
  Receive Date: 20190129
  Receipt Date: 20190206
  Transmission Date: 20190417
  Serious: Yes (Other)
  Sender: FDA-Public Use
  Company Number: CA-PFIZER INC-2019029160

PATIENT
  Age: 56 Year
  Sex: Male

DRUGS (4)
  1. DILAUDID [Concomitant]
     Active Substance: HYDROMORPHONE HYDROCHLORIDE
     Dosage: UNK
  2. 6-MERCAPTOPURINE MONOHYDRATE [Concomitant]
     Active Substance: MERCAPTOPURINE
     Dosage: UNK
  3. METHOTREXATE SODIUM. [Suspect]
     Active Substance: METHOTREXATE SODIUM
     Dosage: UNK
     Dates: end: 1996
  4. TENOXICAM [Concomitant]
     Active Substance: TENOXICAM
     Dosage: UNK

REACTIONS (4)
  - Interstitial lung disease [Unknown]
  - Autoimmune lung disease [Unknown]
  - Drug ineffective [Unknown]
  - Drug intolerance [Unknown]
